FAERS Safety Report 12284027 (Version 1)
Quarter: 2016Q2

REPORT INFORMATION
  Report Type: Report from Study
  Country: JP (occurrence: JP)
  Receive Date: 20160419
  Receipt Date: 20160419
  Transmission Date: 20160815
  Serious: Yes (Hospitalization)
  Sender: FDA-Public Use
  Company Number: JP-GILEAD-2005-0008567

PATIENT
  Age: 72 Year
  Sex: Male

DRUGS (16)
  1. TENOFOVIR DISOPROXIL FUMARATE. [Suspect]
     Active Substance: TENOFOVIR DISOPROXIL FUMARATE
     Indication: HIV INFECTION
     Route: 048
     Dates: start: 20041206
  2. STOCRIN [Suspect]
     Active Substance: EFAVIRENZ
     Route: 048
     Dates: start: 20040304, end: 20040614
  3. EPIVIR [Suspect]
     Active Substance: LAMIVUDINE
     Indication: HIV INFECTION
     Route: 048
     Dates: start: 20040708, end: 20040812
  4. VIDEX [Suspect]
     Active Substance: DIDANOSINE
     Indication: HIV INFECTION
     Route: 048
     Dates: start: 20041206
  5. REYATAZ [Suspect]
     Active Substance: ATAZANAVIR SULFATE
     Indication: HIV INFECTION
     Route: 048
     Dates: start: 20041206
  6. AMOBAN [Concomitant]
     Active Substance: ZOPICLONE
     Dates: start: 20040715
  7. TENOFOVIR DISOPROXIL FUMARATE. [Suspect]
     Active Substance: TENOFOVIR DISOPROXIL FUMARATE
     Route: 048
     Dates: start: 20040708, end: 20040812
  8. EPIVIR [Suspect]
     Active Substance: LAMIVUDINE
     Route: 048
     Dates: start: 20040417, end: 20040614
  9. LENDORMIN [Concomitant]
     Active Substance: BROTIZOLAM
     Dates: start: 20040401
  10. ZIAGEN [Suspect]
     Active Substance: ABACAVIR SULFATE
     Indication: HIV INFECTION
     Route: 048
     Dates: start: 20040421, end: 20040614
  11. STOCRIN [Suspect]
     Active Substance: EFAVIRENZ
     Indication: HIV INFECTION
     Route: 048
     Dates: start: 20040708, end: 20040812
  12. LOXONIN [Concomitant]
     Active Substance: LOXOPROFEN SODIUM
     Dates: start: 20040401
  13. COMBIVIR [Suspect]
     Active Substance: LAMIVUDINE\ZIDOVUDINE
     Indication: HIV INFECTION
     Route: 048
     Dates: start: 20040401, end: 20040416
  14. ZERIT [Suspect]
     Active Substance: STAVUDINE
     Indication: HIV INFECTION
     Route: 048
     Dates: start: 20040417, end: 20040420
  15. NORVIR [Suspect]
     Active Substance: RITONAVIR
     Indication: HIV INFECTION
     Route: 048
     Dates: start: 20041224
  16. URSO [Concomitant]
     Active Substance: URSODIOL

REACTIONS (2)
  - Liver disorder [Recovering/Resolving]
  - Hypoaesthesia [Not Recovered/Not Resolved]
